FAERS Safety Report 20728877 (Version 1)
Quarter: 2022Q2

REPORT INFORMATION
  Report Type: Spontaneous
  Country: DE (occurrence: DE)
  Receive Date: 20220420
  Receipt Date: 20220420
  Transmission Date: 20220721
  Serious: Yes (Hospitalization, Other)
  Sender: FDA-Public Use
  Company Number: None

PATIENT
  Age: 76 Year
  Sex: Female
  Weight: 73 kg

DRUGS (17)
  1. LINEZOLID [Suspect]
     Active Substance: LINEZOLID
     Indication: Pneumonia klebsiella
     Dosage: 1 DOSAGE FORM, BID (SOLUTION FOR INFUSION)
     Route: 042
     Dates: start: 20220212, end: 20220214
  2. LINEZOLID [Suspect]
     Active Substance: LINEZOLID
     Indication: Pneumonia escherichia
  3. AMLODIPINE BESYLATE [Concomitant]
     Active Substance: AMLODIPINE BESYLATE
     Indication: Product used for unknown indication
     Dosage: 10 MILLIGRAM (EVERY 1 DAY)
     Route: 048
  4. BISOPROLOL [Concomitant]
     Active Substance: BISOPROLOL
     Indication: Product used for unknown indication
     Dosage: 5 MILLIGRAM (EVERY 1 DAY)
     Route: 048
  5. CANDESARTAN [Concomitant]
     Active Substance: CANDESARTAN
     Indication: Product used for unknown indication
     Dosage: 16 MILLIGRAM, BID
     Route: 048
  6. CASPOFUNGIN [Concomitant]
     Active Substance: CASPOFUNGIN
     Indication: Pneumonia escherichia
     Dosage: 1 DOSAGE FORM (EVERY 1 DAY) (POWDER FOR CONCENTRATE FOR SOLUTION FOR INFUSION)
     Route: 042
     Dates: start: 20220211, end: 20220216
  7. CASPOFUNGIN [Concomitant]
     Active Substance: CASPOFUNGIN
     Indication: Pneumonia klebsiella
  8. Certoparin Novartis 8000 I.E. [Concomitant]
     Indication: Product used for unknown indication
     Dosage: 8000 INTERNATIONAL UNIT (EVERY 1 DAY) (SOLUTION FOR INJECTION)
     Route: 058
  9. INSULIN NOS [Concomitant]
     Active Substance: INSULIN NOS
     Indication: Type 2 diabetes mellitus
     Dosage: UNK
     Route: 058
  10. Ipramol TEVA 0.5 mg+2.5 mg/2.5 ml Steri-Neb Losung fur einen Vernebler [Concomitant]
     Indication: Product used for unknown indication
     Dosage: 1 DOSAGE FORM (EVERY 1 DAY) (NEBULISER SOLUTION)
     Route: 055
  11. POTASSIUM CITRATE [Concomitant]
     Active Substance: POTASSIUM CITRATE
     Indication: Product used for unknown indication
     Dosage: 2 DOSAGE FORM (EVERY 1 DAY) (GRANULES FOR ORAL SOLUTION)
     Route: 048
  12. LACTULOSE [Concomitant]
     Active Substance: LACTULOSE
     Indication: Product used for unknown indication
     Dosage: 20 MILLILITER, TID (EVERY 8 HOUR)
     Route: 048
  13. MEROPENEM [Concomitant]
     Active Substance: MEROPENEM
     Indication: Pneumonia escherichia
     Dosage: UNK
     Route: 042
     Dates: start: 20220211, end: 20220224
  14. MEROPENEM [Concomitant]
     Active Substance: MEROPENEM
     Indication: Pneumonia klebsiella
  15. MOXONIDINE [Concomitant]
     Active Substance: MOXONIDINE
     Indication: Product used for unknown indication
     Dosage: 1 DOSAGE FORM (EVERY 1 DAY), 0.2 MG
     Route: 048
  16. PANTOPRAZOLE SODIUM [Concomitant]
     Active Substance: PANTOPRAZOLE SODIUM
     Indication: Product used for unknown indication
     Dosage: 40 MILLIGRAM (EVERY 1 DAY)
     Route: 048
  17. Xipamid 10 [Concomitant]
     Indication: Product used for unknown indication
     Dosage: 10 MILLIGRAM (EVERY 1 DAY)
     Route: 048

REACTIONS (1)
  - Thrombocytopenia [Recovering/Resolving]

NARRATIVE: CASE EVENT DATE: 20220214
